FAERS Safety Report 19840301 (Version 1)
Quarter: 2021Q3

REPORT INFORMATION
  Report Type: Spontaneous
  Country: MY (occurrence: MY)
  Receive Date: 20210915
  Receipt Date: 20210915
  Transmission Date: 20211014
  Serious: Yes (Other)
  Sender: FDA-Public Use
  Company Number: MY-GLAXOSMITHKLINE-MYCH2021GSK062835

PATIENT

DRUGS (1)
  1. IBUPROFEN. [Suspect]
     Active Substance: IBUPROFEN
     Indication: PRODUCT USED FOR UNKNOWN INDICATION
     Dosage: UNK (MULTIPLE DOSES)

REACTIONS (8)
  - Pharyngeal haematoma [Unknown]
  - Dysphagia [Unknown]
  - Oropharyngeal discomfort [Unknown]
  - Increased tendency to bruise [Unknown]
  - Drug hypersensitivity [Unknown]
  - Odynophagia [Unknown]
  - Dysphonia [Unknown]
  - Laryngeal haematoma [Unknown]
